FAERS Safety Report 6847904-8 (Version None)
Quarter: 2010Q3

REPORT INFORMATION
  Report Type: 
  Country: None (occurrence: None)
  Receive Date: 20100716
  Receipt Date: 20100712
  Transmission Date: 20110219
  Serious: Yes (Hospitalization)
  Sender: FDA-Public Use
  Company Number: DE-SANOFI-AVENTIS-2010SA040540

PATIENT
  Age: 69 Year
  Sex: Male

DRUGS (10)
  1. DOCETAXEL [Suspect]
     Indication: NON-SMALL CELL LUNG CANCER
     Route: 041
     Dates: start: 20100610, end: 20100610
  2. OXALIPLATIN [Suspect]
     Indication: NON-SMALL CELL LUNG CANCER
     Route: 041
     Dates: start: 20100610, end: 20100610
  3. DEXAMETHASONE [Concomitant]
     Indication: PREMEDICATION
     Route: 048
     Dates: start: 20100609, end: 20100609
  4. DEXAMETHASONE [Concomitant]
     Route: 042
     Dates: start: 20100610, end: 20100610
  5. KEVATRIL [Concomitant]
     Indication: PREMEDICATION
     Route: 042
     Dates: start: 20100610, end: 20100610
  6. CALCIUM GLUCONATE [Concomitant]
     Indication: PREMEDICATION
     Route: 042
     Dates: start: 20100610, end: 20100610
  7. MAGNESIUM SULFATE [Concomitant]
     Indication: PREMEDICATION
     Route: 042
     Dates: start: 20100610, end: 20100610
  8. FENISTIL [Concomitant]
     Indication: PREMEDICATION
     Dates: start: 20100610, end: 20100610
  9. SOLU-DECORTIN-H [Concomitant]
     Indication: PREMEDICATION
     Route: 042
     Dates: start: 20100610, end: 20100610
  10. RANITIC [Concomitant]
     Indication: PREMEDICATION
     Route: 042
     Dates: start: 20100610, end: 20100610

REACTIONS (3)
  - CIRCULATORY COLLAPSE [None]
  - DEHYDRATION [None]
  - LEUKOPENIA [None]
